FAERS Safety Report 5478868-X (Version None)
Quarter: 2007Q4

REPORT INFORMATION
  Report Type: 
  Country: None (occurrence: None)
  Receive Date: 20071002
  Receipt Date: 20070924
  Transmission Date: 20080405
  Serious: Yes (Life-Threatening, Hospitalization)
  Sender: FDA-Public Use
  Company Number: 20074001

PATIENT
  Sex: Female

DRUGS (2)
  1. LIORESAL [Suspect]
     Indication: MUSCLE SPASTICITY
     Dosage: DAILY, INTRATHECAL
     Route: 037
  2. COUMADIN [Concomitant]

REACTIONS (7)
  - HEADACHE [None]
  - INCISION SITE OEDEMA [None]
  - INTRACRANIAL HYPOTENSION [None]
  - OVERDOSE [None]
  - SUBDURAL HAEMATOMA [None]
  - URINARY TRACT INFECTION [None]
  - WRONG TECHNIQUE IN DRUG USAGE PROCESS [None]
